FAERS Safety Report 5517502-7 (Version None)
Quarter: 2007Q4

REPORT INFORMATION
  Report Type: 
  Country: None (occurrence: None)
  Receive Date: 20071114
  Receipt Date: 20071102
  Transmission Date: 20080405
  Serious: Yes (Life-Threatening, Hospitalization, Other)
  Sender: FDA-Public Use
  Company Number: JP-PFIZER INC-2007072182

PATIENT
  Sex: Female
  Weight: 45.3 kg

DRUGS (8)
  1. UNASYN [Suspect]
     Indication: PNEUMONIA
     Dosage: DAILY DOSE:3GRAM
     Route: 042
     Dates: start: 20070718, end: 20070723
  2. MEROPEN [Concomitant]
     Route: 042
  3. MINOCYCLINE HCL [Concomitant]
     Route: 048
  4. NORVASC [Concomitant]
     Indication: HYPERTENSION
     Route: 048
  5. BUP-4 [Concomitant]
     Indication: NEUROGENIC BLADDER
     Route: 048
  6. LENDORMIN [Concomitant]
     Indication: INSOMNIA
     Route: 048
  7. CLARITHROMYCIN [Concomitant]
     Route: 048
     Dates: start: 20070718, end: 20070723
  8. VOLTAREN [Concomitant]
     Route: 054

REACTIONS (1)
  - EOSINOPHILIC PNEUMONIA CHRONIC [None]
